FAERS Safety Report 6716472-3 (Version None)
Quarter: 2010Q2

REPORT INFORMATION
  Report Type: 
  Country: None (occurrence: None)
  Receive Date: 20100507
  Receipt Date: 20100428
  Transmission Date: 20101027
  Serious: Yes (Hospitalization)
  Sender: FDA-Public Use
  Company Number: PHHO2010KR04707

PATIENT
  Sex: Male
  Weight: 80 kg

DRUGS (1)
  1. AFINITOR [Suspect]
     Indication: METASTATIC RENAL CELL CARCINOMA
     Dosage: 10MG / DAY
     Route: 048
     Dates: start: 20100202, end: 20100319

REACTIONS (10)
  - ASPERGILLOSIS [None]
  - CHILLS [None]
  - CONDITION AGGRAVATED [None]
  - LUNG CONSOLIDATION [None]
  - MALIGNANT NEOPLASM PROGRESSION [None]
  - PNEUMONIA [None]
  - PULMONARY EMBOLISM [None]
  - PYREXIA [None]
  - RENAL CANCER METASTATIC [None]
  - STREPTOCOCCAL INFECTION [None]
